FAERS Safety Report 8574272-6 (Version None)
Quarter: 2012Q3

REPORT INFORMATION
  Report Type: 
  Country: None (occurrence: None)
  Receive Date: 20120806
  Receipt Date: 20120724
  Transmission Date: 20120928
  Serious: No
  Sender: FDA-Public Use
  Company Number: US-ASTRAZENECA-2012SE52751

PATIENT
  Sex: Female

DRUGS (6)
  1. HEPARIN [Concomitant]
  2. SINGULAIR [Concomitant]
  3. PULMICORT FLEXHALER [Suspect]
     Indication: ASTHMA
     Route: 055
  4. PROTONIX [Concomitant]
  5. ANTIBIOTICS [Concomitant]
  6. SOLU-MEDROL [Concomitant]

REACTIONS (2)
  - MATERNAL EXPOSURE DURING PREGNANCY [None]
  - INFLUENZA [None]
